FAERS Safety Report 7464113-2 (Version None)
Quarter: 2011Q2

REPORT INFORMATION
  Report Type: 
  Country: None (occurrence: None)
  Receive Date: 20110506
  Receipt Date: 20101014
  Transmission Date: 20111010
  Serious: No
  Sender: FDA-Public Use
  Company Number: US-AMGEN-USASP2010000368

PATIENT
  Age: 45 Year
  Sex: Female

DRUGS (3)
  1. CYTOXAN [Concomitant]
  2. DOXIL                              /00055703/ [Concomitant]
  3. NEULASTA [Suspect]
     Indication: CHEMOTHERAPY
     Dates: start: 20101008

REACTIONS (2)
  - PAIN [None]
  - ARTHRALGIA [None]
